FAERS Safety Report 15851449 (Version 2)
Quarter: 2023Q1

REPORT INFORMATION
  Report Type: Spontaneous
  Country: PL (occurrence: PL)
  Receive Date: 20190122
  Receipt Date: 20230225
  Transmission Date: 20230417
  Serious: Yes (Hospitalization, Other)
  Sender: FDA-Public Use
  Company Number: PL-AUROBINDO-AUR-APL-2019-002321

PATIENT
  Age: 10 Year
  Sex: Male

DRUGS (1)
  1. AMOXICILLIN\CLAVULANIC ACID [Suspect]
     Active Substance: AMOXICILLIN\CLAVULANIC ACID
     Indication: Streptococcal infection
     Dosage: UNK
     Route: 065

REACTIONS (11)
  - Encephalitis viral [Recovering/Resolving]
  - Drug ineffective [Unknown]
  - Psychomotor retardation [Unknown]
  - Clumsiness [Unknown]
  - Muscular weakness [Unknown]
  - Dysdiadochokinesis [Unknown]
  - Abnormal behaviour [Unknown]
  - Somnolence [Unknown]
  - Pyrexia [Unknown]
  - Meningitis [Unknown]
  - Gait disturbance [Unknown]
